FAERS Safety Report 16437733 (Version 1)
Quarter: 2019Q2

REPORT INFORMATION
  Report Type: Spontaneous
  Country: US (occurrence: US)
  Receive Date: 20190616
  Receipt Date: 20190616
  Transmission Date: 20190711
  Serious: No
  Sender: FDA-Public Use
  Company Number: US-009507513-1906USA005478

PATIENT
  Sex: Female

DRUGS (3)
  1. ZOCOR [Interacting]
     Active Substance: SIMVASTATIN
     Dosage: UNK
  2. AMLODIPINE [Interacting]
     Active Substance: AMLODIPINE BESYLATE
     Indication: BLOOD PRESSURE MEASUREMENT
     Dosage: 5 MILLIGRAM
     Route: 048
     Dates: start: 20190507
  3. PRINIVIL [Suspect]
     Active Substance: LISINOPRIL
     Dosage: UNK
     Route: 048

REACTIONS (2)
  - Cough [Unknown]
  - Labelled drug-drug interaction medication error [Unknown]
